FAERS Safety Report 10102016 (Version 1)
Quarter: 2014Q2

REPORT INFORMATION
  Report Type: Spontaneous
  Country: US (occurrence: US)
  Receive Date: 20140424
  Receipt Date: 20140424
  Transmission Date: 20141212
  Serious: Yes (Hospitalization, Other)
  Sender: FDA-Public Use
  Company Number: US-ASTRAZENECA-2014SE26803

PATIENT
  Age: 69 Year
  Sex: Male
  Weight: 81.6 kg

DRUGS (5)
  1. ATENOLOL [Suspect]
     Indication: ANGINA PECTORIS
     Route: 048
     Dates: start: 2012
  2. NEXIUM [Suspect]
     Indication: BARRETT^S OESOPHAGUS
     Route: 048
     Dates: start: 2004
  3. ATORVASTATIN [Concomitant]
     Indication: CARDIAC DISORDER
     Route: 048
     Dates: start: 2008
  4. ASPIRIN [Concomitant]
     Route: 048
  5. OTC VITAMINS [Concomitant]
     Indication: VITAMIN SUPPLEMENTATION
     Dosage: NOT GIVEN DAILY
     Route: 048

REACTIONS (3)
  - Angina pectoris [Unknown]
  - Surgical failure [Unknown]
  - Intentional product misuse [Unknown]
